FAERS Safety Report 18065743 (Version 2)
Quarter: 2020Q4

REPORT INFORMATION
  Report Type: Report from Study
  Country: US (occurrence: US)
  Receive Date: 20200724
  Receipt Date: 20201103
  Transmission Date: 20210113
  Serious: No
  Sender: FDA-Public Use
  Company Number: NVSC2020US206522

PATIENT
  Sex: Female

DRUGS (1)
  1. GILENYA [Suspect]
     Active Substance: FINGOLIMOD HYDROCHLORIDE
     Indication: PRODUCT USED FOR UNKNOWN INDICATION
     Route: 065

REACTIONS (6)
  - Respiratory disorder [Unknown]
  - Chest pain [Unknown]
  - Aphonia [Unknown]
  - Dry mouth [Not Recovered/Not Resolved]
  - Dyspnoea [Unknown]
  - Throat irritation [Unknown]
